FAERS Safety Report 6511103-X (Version None)
Quarter: 2009Q4

REPORT INFORMATION
  Report Type: 
  Country: None (occurrence: None)
  Receive Date: 20091217
  Receipt Date: 20091208
  Transmission Date: 20100525
  Serious: Yes (Other)
  Sender: FDA-Public Use
  Company Number: DSA_42163_2009

PATIENT
  Sex: Male

DRUGS (4)
  1. XENAZINE [Suspect]
     Indication: TIC
     Dosage: 25 MG TID ORAL
     Route: 048
     Dates: start: 20090901
  2. KEPPRA [Concomitant]
  3. BENZTROPINE MESYLATE [Concomitant]
  4. MULTIVITAMIN /00831701/ [Concomitant]

REACTIONS (2)
  - DYSTONIA [None]
  - SOMNOLENCE [None]
